FAERS Safety Report 9121357 (Version 1)
Quarter: 2013Q1

REPORT INFORMATION
  Report Type: Spontaneous
  Country: IN (occurrence: IN)
  Receive Date: 20130225
  Receipt Date: 20130225
  Transmission Date: 20140127
  Serious: Yes (Death, Hospitalization)
  Sender: FDA-Public Use
  Company Number: IN-BRISTOL-MYERS SQUIBB COMPANY-17386970

PATIENT
  Age: 24 Year
  Sex: Male

DRUGS (1)
  1. SPRYCEL [Suspect]
     Dates: start: 20100826, end: 20120925

REACTIONS (2)
  - Malignant neoplasm progression [Fatal]
  - Bone marrow transplant [Unknown]
